FAERS Safety Report 10993214 (Version 1)
Quarter: 2015Q2

REPORT INFORMATION
  Report Type: Spontaneous
  Country: BR (occurrence: BR)
  Receive Date: 20150407
  Receipt Date: 20150407
  Transmission Date: 20150821
  Serious: Yes (Other)
  Sender: FDA-Public Use
  Company Number: BR-ABBVIE-15K-020-1371166-00

PATIENT
  Age: 23 Year

DRUGS (1)
  1. HUMIRA [Suspect]
     Active Substance: ADALIMUMAB
     Indication: JUVENILE IDIOPATHIC ARTHRITIS
     Route: 065
     Dates: start: 2010

REACTIONS (3)
  - Erythema nodosum [Unknown]
  - Cutaneous tuberculosis [Unknown]
  - Foreign body reaction [Unknown]

NARRATIVE: CASE EVENT DATE: 201503
